FAERS Safety Report 18578722 (Version 1)
Quarter: 2020Q4

REPORT INFORMATION
  Report Type: Spontaneous
  Country: GB (occurrence: GB)
  Receive Date: 20201204
  Receipt Date: 20201204
  Transmission Date: 20210114
  Serious: Yes (Congenital Anomaly)
  Sender: FDA-Public Use
  Company Number: GB-TEVA-2020-GB-1854691

PATIENT
  Sex: Male

DRUGS (10)
  1. DEXAMETHASONE. [Suspect]
     Active Substance: DEXAMETHASONE
     Indication: IN VITRO FERTILISATION
     Dosage: FOR 2 WEEKS THEN 0.5MG DAILY, 1 MG
     Route: 064
     Dates: start: 20200116, end: 20200130
  2. IMMUNGLOBULIN [Concomitant]
     Active Substance: HUMAN IMMUNOGLOBULIN G
  3. ENOXAPARIN SODIUM. [Concomitant]
     Active Substance: ENOXAPARIN SODIUM
  4. DEXAMETHASONE. [Suspect]
     Active Substance: DEXAMETHASONE
     Dosage: FOLLOWING 1MG DAILY FOR 2 WEEKS, 0.5 MG
     Route: 064
     Dates: start: 20200130
  5. THYROXINE [Concomitant]
     Active Substance: LEVOTHYROXINE
  6. ACETYLSALICYLIC ACID [Concomitant]
     Active Substance: ASPIRIN
  7. OMEPRAZOLE. [Concomitant]
     Active Substance: OMEPRAZOLE
  8. PRONTOGEST [Concomitant]
     Active Substance: PROGESTERONE
  9. VITAMIN D [Concomitant]
     Active Substance: VITAMIN D NOS
  10. CYCLOGEST [Concomitant]
     Active Substance: PROGESTERONE

REACTIONS (2)
  - Osteopenia [Recovered/Resolved]
  - Skull fracture [Recovered/Resolved]

NARRATIVE: CASE EVENT DATE: 20200923
